FAERS Safety Report 17800800 (Version 2)
Quarter: 2020Q2

REPORT INFORMATION
  Report Type: Report from Study
  Country: US (occurrence: US)
  Receive Date: 20200519
  Receipt Date: 20200615
  Transmission Date: 20200714
  Serious: Yes (Hospitalization)
  Sender: FDA-Public Use
  Company Number: US-ROCHE-2602044

PATIENT
  Age: 68 Year
  Sex: Male

DRUGS (13)
  1. LEXAPRO [Concomitant]
     Active Substance: ESCITALOPRAM OXALATE
  2. XANAX [Concomitant]
     Active Substance: ALPRAZOLAM
  3. PHOSPHA 250 NEUTRAL [Concomitant]
     Active Substance: POTASSIUM PHOSPHATE, MONOBASIC\SODIUM PHOSPHATE, DIBASIC, ANHYDROUS\SODIUM PHOSPHATE, MONOBASIC, MONOHYDRATE
  4. CABOZANTINIB [Suspect]
     Active Substance: CABOZANTINIB
     Indication: HEAD AND NECK CANCER
     Dosage: ON 04/MAY/2020, RECEIVED THE MOST RECENT DOSE OF CABOZANTINIB PRIOR TO THE EVENT ONSET;
     Route: 048
     Dates: start: 20190710
  5. METOPROLOL SUCCINATE. [Concomitant]
     Active Substance: METOPROLOL SUCCINATE
  6. ATORVASTATIN [Concomitant]
     Active Substance: ATORVASTATIN
  7. AMLODIPINE [Concomitant]
     Active Substance: AMLODIPINE BESYLATE
  8. LEVOTHYROXINE. [Concomitant]
     Active Substance: LEVOTHYROXINE
  9. METFORMIN [Concomitant]
     Active Substance: METFORMIN HYDROCHLORIDE
     Route: 065
  10. PROCHLORPERAZINE. [Concomitant]
     Active Substance: PROCHLORPERAZINE
  11. TRAMADOL. [Concomitant]
     Active Substance: TRAMADOL
     Indication: PAIN
     Route: 065
  12. ATEZOLIZUMAB. [Suspect]
     Active Substance: ATEZOLIZUMAB
     Indication: HEAD AND NECK CANCER
     Dosage: ON 29/APR/2020, RECEIVED MOST RECENT DOSE OF ATEZOLIZUMAB PRIOR TO EVENT ONSET.
     Route: 042
     Dates: start: 20190710
  13. CABOZANTINIB [Suspect]
     Active Substance: CABOZANTINIB
     Route: 048
     Dates: start: 20200507

REACTIONS (1)
  - Fall [Unknown]

NARRATIVE: CASE EVENT DATE: 20200505
